FAERS Safety Report 8839301 (Version 1)
Quarter: 2012Q4

REPORT INFORMATION
  Report Type: 
  Country: US (occurrence: US)
  Receive Date: 20121015
  Receipt Date: 20121015
  Transmission Date: 20130627
  Serious: No
  Sender: FDA-Public Use
  Company Number: US-GLAXOSMITHKLINE-A0972757A

PATIENT
  Age: 30 Year
  Sex: Female

DRUGS (1)
  1. DUAC [Suspect]
     Indication: ACNE
     Route: 061
     Dates: start: 20111228, end: 20120104

REACTIONS (2)
  - Application site pain [Recovered/Resolved]
  - Application site paraesthesia [Unknown]
